FAERS Safety Report 4433280-7 (Version None)
Quarter: 2004Q3

REPORT INFORMATION
  Report Type: 
  Country: None (occurrence: None)
  Receive Date: 20040824
  Receipt Date: 20040806
  Transmission Date: 20050211
  Serious: Yes (Other)
  Sender: FDA-Public Use
  Company Number: B0342411A

PATIENT
  Age: 32 Year
  Sex: Female

DRUGS (3)
  1. EPIVIR [Suspect]
  2. RETROVIR [Suspect]
  3. STAVUDINE                        (STAVUDINE) [Suspect]

REACTIONS (5)
  - ANOREXIA [None]
  - ASTHENIA [None]
  - HYPERLACTACIDAEMIA [None]
  - POLYNEUROPATHY [None]
  - VOMITING [None]
